FAERS Safety Report 6716877-0 (Version None)
Quarter: 2010Q2

REPORT INFORMATION
  Report Type: 
  Country: None (occurrence: None)
  Receive Date: 20100510
  Receipt Date: 20100503
  Transmission Date: 20101027
  Serious: Yes (Other)
  Sender: FDA-Public Use
  Company Number: US-CEPHALON-2010002522

PATIENT
  Sex: Male
  Weight: 104 kg

DRUGS (13)
  1. PROVIGIL [Suspect]
     Indication: FATIGUE
     Route: 048
     Dates: start: 20050101
  2. BUPIVACAINE HCL [Concomitant]
     Indication: SURGERY
     Dates: start: 20050101
  3. CLONIDINE [Concomitant]
     Indication: SURGERY
     Dates: start: 20050101
  4. HYDROMORPHONE HCL [Concomitant]
     Indication: SURGERY
     Dates: start: 20050101
  5. SUFENTA PRESERVATIVE FREE [Concomitant]
     Indication: SURGERY
     Dates: start: 20050101
  6. KETAMINE [Concomitant]
     Indication: SURGERY
     Dates: start: 20050101
  7. GABAPENTIN [Concomitant]
     Indication: PAIN
     Dates: start: 20050101
  8. MELOXICAM [Concomitant]
     Indication: PAIN
     Dates: start: 20050101
  9. CITALOPRAM HYDROBROMIDE [Concomitant]
     Indication: DEPRESSION
     Dates: start: 20050101
  10. LEVOTHYROXINE SODIUM [Concomitant]
     Indication: HORMONE REPLACEMENT THERAPY
     Dates: start: 20080101
  11. OMAPRAZOLE [Concomitant]
     Indication: ABDOMINAL DISCOMFORT
     Dates: start: 20090101
  12. SIMVASTATIN [Concomitant]
     Indication: BLOOD CHOLESTEROL INCREASED
     Dates: start: 20010101
  13. TESTOSTERONE [Concomitant]
     Indication: BLOOD TESTOSTERONE ABNORMAL
     Dates: start: 20080101

REACTIONS (3)
  - EYE PAIN [None]
  - HEADACHE [None]
  - SLEEP APNOEA SYNDROME [None]
